FAERS Safety Report 10074250 (Version 1)
Quarter: 2014Q2

REPORT INFORMATION
  Report Type: Spontaneous
  Country: US (occurrence: US)
  Receive Date: 20140411
  Receipt Date: 20140411
  Transmission Date: 20141212
  Serious: No
  Sender: FDA-Public Use
  Company Number: US-SA-2013SA114888

PATIENT
  Age: 10 Year
  Sex: Female

DRUGS (2)
  1. ALLEGRA [Suspect]
     Route: 048
  2. DIMETAPP COLD [Concomitant]
     Route: 065

REACTIONS (1)
  - Cough [Unknown]
